FAERS Safety Report 23166790 (Version 1)
Quarter: 2023Q4

REPORT INFORMATION
  Report Type: Spontaneous
  Country: FR (occurrence: FR)
  Receive Date: 20231109
  Receipt Date: 20231109
  Transmission Date: 20240110
  Serious: Yes (Death)
  Sender: FDA-Public Use
  Company Number: None

PATIENT
  Age: 32 Year
  Sex: Male

DRUGS (6)
  1. ACETAMINOPHEN [Suspect]
     Active Substance: ACETAMINOPHEN
     Indication: Product used for unknown indication
     Dates: end: 20230911
  2. IRBESARTAN [Suspect]
     Active Substance: IRBESARTAN
     Indication: Product used for unknown indication
     Dates: end: 20230911
  3. CODEINE [Suspect]
     Active Substance: CODEINE
     Indication: Product used for unknown indication
     Dates: end: 20230911
  4. ALCOHOL [Suspect]
     Active Substance: ALCOHOL
     Indication: Product used for unknown indication
     Dates: end: 20230911
  5. MORPHINE [Suspect]
     Active Substance: MORPHINE
     Indication: Product used for unknown indication
     Dates: end: 20230911
  6. SALICYLIC ACID [Suspect]
     Active Substance: BENZETHONIUM CHLORIDE\DEXTROMETHORPHAN HYDROBROMIDE\DYCLONINE HYDROCHLORIDE\GUAIFENESIN\SALICYLIC AC
     Indication: Product used for unknown indication
     Dates: end: 20230911

REACTIONS (2)
  - Poisoning [Fatal]
  - Drug abuse [Fatal]
